FAERS Safety Report 7978613-X (Version None)
Quarter: 2011Q4

REPORT INFORMATION
  Report Type: 
  Country: None (occurrence: None)
  Receive Date: 20111206
  Receipt Date: 20111125
  Transmission Date: 20120403
  Serious: Yes (Life-Threatening, Disabling)
  Sender: FDA-Public Use
  Company Number: WAES 0112USA02604

PATIENT
  Age: 24 Year
  Sex: Male

DRUGS (22)
  1. CRIXIVAN [Suspect]
     Indication: HIV INFECTION
     Dosage: 800 MG/DAILY PO
     Route: 048
     Dates: start: 20000318, end: 20000524
  2. NORVIR [Suspect]
     Indication: HIV INFECTION
     Dosage: 400 MG/BID PO ; 800 MG/DAILY PO ; 100 MG/DAILY PO ; 200 MG/DAILY PO
     Route: 048
     Dates: start: 19990619, end: 19991031
  3. NORVIR [Suspect]
     Indication: HIV INFECTION
     Dosage: 400 MG/BID PO ; 800 MG/DAILY PO ; 100 MG/DAILY PO ; 200 MG/DAILY PO
     Route: 048
     Dates: start: 20080920
  4. NORVIR [Suspect]
     Indication: HIV INFECTION
     Dosage: 400 MG/BID PO ; 800 MG/DAILY PO ; 100 MG/DAILY PO ; 200 MG/DAILY PO
     Route: 048
     Dates: start: 20050425, end: 20080919
  5. NORVIR [Suspect]
     Indication: HIV INFECTION
     Dosage: 400 MG/BID PO ; 800 MG/DAILY PO ; 100 MG/DAILY PO ; 200 MG/DAILY PO
     Route: 048
     Dates: start: 19991101, end: 20001224
  6. ZIAGEN [Suspect]
     Indication: HIV INFECTION
     Dosage: 600 MG/DAILY PO ; 600 MG/DAILY PO
     Route: 048
     Dates: start: 20000724, end: 20000725
  7. ZIAGEN [Suspect]
     Indication: HIV INFECTION
     Dosage: 600 MG/DAILY PO ; 600 MG/DAILY PO
     Route: 048
     Dates: start: 20011020, end: 20011027
  8. KALETRA [Suspect]
     Indication: HIV INFECTION
     Dosage: 6 DOSE/DAILY PO
     Route: 048
     Dates: start: 20001225, end: 20040424
  9. EFAVIRENZ [Suspect]
     Indication: HIV INFECTION
     Dosage: 600 MG/DAILY PO ; 600 MG/DAILY PO
     Route: 048
     Dates: start: 20000925, end: 20001002
  10. EFAVIRENZ [Suspect]
     Indication: HIV INFECTION
     Dosage: 600 MG/DAILY PO ; 600 MG/DAILY PO
     Route: 048
     Dates: start: 20000724, end: 20000725
  11. VIDEX [Suspect]
     Indication: HIV INFECTION
     Dosage: 400 MG/DAILY PO
     Route: 048
     Dates: start: 20010721, end: 20040514
  12. VIDEX [Suspect]
     Indication: HIV INFECTION
     Dosage: 125 MG/BID PO ; 300 MG/DAILY PO
     Route: 048
     Dates: start: 19941219, end: 19970307
  13. VIDEX [Suspect]
     Indication: HIV INFECTION
     Dosage: 125 MG/BID PO ; 300 MG/DAILY PO
     Route: 048
     Dates: start: 19970307, end: 20010721
  14. INVIRASE [Suspect]
     Indication: HIV INFECTION
     Dosage: 400 MG/BID PO ; 800 MG/DAILY PO
     Route: 048
     Dates: start: 19990619, end: 20000318
  15. INVIRASE [Suspect]
     Indication: HIV INFECTION
     Dosage: 400 MG/BID PO ; 800 MG/DAILY PO
     Route: 048
     Dates: start: 20000524, end: 20001224
  16. ANTIHEMOPHILIC FACTOR (HUMAN) [Concomitant]
  17. ZERIT [Suspect]
     Indication: HIV INFECTION
     Dosage: 30 MG/BID PO ; 40 MG/BID PO ; 30 MG/BID PO ; 40 MG/BID PO ; 80 MG/DAILY PO
     Route: 048
     Dates: start: 19980227, end: 19980803
  18. ZERIT [Suspect]
     Indication: HIV INFECTION
     Dosage: 30 MG/BID PO ; 40 MG/BID PO ; 30 MG/BID PO ; 40 MG/BID PO ; 80 MG/DAILY PO
     Route: 048
     Dates: start: 19970825, end: 19980227
  19. ZERIT [Suspect]
     Indication: HIV INFECTION
     Dosage: 30 MG/BID PO ; 40 MG/BID PO ; 30 MG/BID PO ; 40 MG/BID PO ; 80 MG/DAILY PO
     Route: 048
     Dates: start: 19980803, end: 19981109
  20. ZERIT [Suspect]
     Indication: HIV INFECTION
     Dosage: 30 MG/BID PO ; 40 MG/BID PO ; 30 MG/BID PO ; 40 MG/BID PO ; 80 MG/DAILY PO
     Route: 048
     Dates: start: 19981109, end: 19990619
  21. ZERIT [Suspect]
     Indication: HIV INFECTION
     Dosage: 30 MG/BID PO ; 40 MG/BID PO ; 30 MG/BID PO ; 40 MG/BID PO ; 80 MG/DAILY PO
     Route: 048
     Dates: start: 20001225, end: 20011020
  22. LAMIVUDINE [Suspect]
     Indication: HIV INFECTION
     Dosage: 300 MG/DAILY PO
     Route: 048
     Dates: start: 20040515, end: 20080919

REACTIONS (4)
  - PALPITATIONS [None]
  - APPARENT LIFE THREATENING EVENT [None]
  - PULMONARY HYPERTENSION [None]
  - DIZZINESS [None]
